FAERS Safety Report 13575833 (Version 1)
Quarter: 2017Q2

REPORT INFORMATION
  Report Type: Spontaneous
  Country: US (occurrence: US)
  Receive Date: 20170524
  Receipt Date: 20170524
  Transmission Date: 20170830
  Serious: Yes (Other)
  Sender: FDA-Public Use
  Company Number: US-ELI_LILLY_AND_COMPANY-US201705004481

PATIENT
  Age: 55 Year
  Sex: Male

DRUGS (11)
  1. CYMBALTA [Suspect]
     Active Substance: DULOXETINE HYDROCHLORIDE
     Indication: PRODUCT USED FOR UNKNOWN INDICATION
     Dosage: 120 MG, DAILY
     Dates: start: 20160720
  2. NEURONTIN [Concomitant]
     Active Substance: GABAPENTIN
     Indication: PRODUCT USED FOR UNKNOWN INDICATION
     Dosage: 600 MG, DAILY
     Route: 048
  3. NORTHERA [Suspect]
     Active Substance: DROXIDOPA
     Indication: PRODUCT USED FOR UNKNOWN INDICATION
     Dosage: 200 MG, TID
     Route: 048
     Dates: start: 20161102
  4. XANAX [Concomitant]
     Active Substance: ALPRAZOLAM
     Indication: RAPID EYE MOVEMENT SLEEP BEHAVIOUR DISORDER
     Dosage: 1 MG, UNKNOWN
     Route: 048
     Dates: start: 20161005
  5. EUCALYPTUS GLOBULUS OIL W/MENTHOL [Concomitant]
     Indication: OROPHARYNGEAL PAIN
  6. SYMMETREL [Concomitant]
     Active Substance: AMANTADINE HYDROCHLORIDE
     Indication: PRODUCT USED FOR UNKNOWN INDICATION
     Dosage: 100 MG, BID
     Route: 048
     Dates: start: 20160720
  7. NORTHERA [Suspect]
     Active Substance: DROXIDOPA
     Dosage: 200 MG, TID
     Route: 048
     Dates: start: 20161229
  8. EUCALYPTUS GLOBULUS OIL W/MENTHOL [Concomitant]
     Indication: COUGH
     Dosage: UNK, PRN
     Route: 065
     Dates: start: 20161201
  9. NORTHERA [Suspect]
     Active Substance: DROXIDOPA
     Dosage: 200 MG, TID
     Route: 048
  10. KLONOPIN [Concomitant]
     Active Substance: CLONAZEPAM
     Indication: PRODUCT USED FOR UNKNOWN INDICATION
     Dosage: 0.5 MG, UNKNOWN
     Route: 048
  11. AMANTADINE. [Suspect]
     Active Substance: AMANTADINE HYDROCHLORIDE
     Indication: PRODUCT USED FOR UNKNOWN INDICATION
     Dosage: UNK, UNKNOWN
     Route: 065

REACTIONS (24)
  - Insomnia [Recovered/Resolved]
  - Dysphagia [Unknown]
  - Functional gastrointestinal disorder [Recovered/Resolved]
  - Fine motor skill dysfunction [Unknown]
  - Stridor [Recovered/Resolved]
  - Diplopia [Unknown]
  - Respiration abnormal [Unknown]
  - Dizziness [Recovered/Resolved]
  - Pneumonia aspiration [Recovered/Resolved]
  - Cerebellar syndrome [Recovered/Resolved]
  - Dizziness postural [Unknown]
  - Disorientation [Recovered/Resolved]
  - Vision blurred [Recovered/Resolved]
  - Sexual dysfunction [Recovered/Resolved]
  - Loss of consciousness [Unknown]
  - Posture abnormal [Recovered/Resolved]
  - Gait disturbance [Unknown]
  - Cerebellar ataxia [Recovered/Resolved]
  - Dysarthria [Recovered/Resolved]
  - Balance disorder [Unknown]
  - Bladder disorder [Recovered/Resolved]
  - Dysphonia [Recovered/Resolved]
  - Dysstasia [Unknown]
  - Dizziness [Unknown]
